FAERS Safety Report 24405113 (Version 1)
Quarter: 2024Q4

REPORT INFORMATION
  Report Type: Spontaneous
  Country: JP (occurrence: JP)
  Receive Date: 20241007
  Receipt Date: 20241007
  Transmission Date: 20250114
  Serious: No
  Sender: ROCHE
  Company Number: JP-CHUGAI-2024009641

PATIENT
  Age: 80 Year
  Sex: Female

DRUGS (3)
  1. GAZYVA [Suspect]
     Active Substance: OBINUTUZUMAB
     Indication: Follicular lymphoma
     Dosage: 1000 MILLIGRAM, ONCE/4WEEKS
     Route: 042
     Dates: start: 2023, end: 202402
  2. GAZYVA [Suspect]
     Active Substance: OBINUTUZUMAB
     Dosage: 1000 MILLIGRAM, ONCE/4WEEKS
     Route: 042
     Dates: start: 202403
  3. BENDAMUSTINE HYDROCHLORIDE [Suspect]
     Active Substance: BENDAMUSTINE HYDROCHLORIDE
     Indication: Follicular lymphoma
     Route: 065
     Dates: start: 2023, end: 202402

REACTIONS (2)
  - Coronavirus infection [Recovered/Resolved]
  - Infection susceptibility increased [Unknown]

NARRATIVE: CASE EVENT DATE: 20240201
